FAERS Safety Report 10097308 (Version 1)
Quarter: 2014Q2

REPORT INFORMATION
  Report Type: Spontaneous
  Country: SE (occurrence: SE)
  Receive Date: 20140423
  Receipt Date: 20140423
  Transmission Date: 20141212
  Serious: Yes (Other)
  Sender: FDA-Public Use
  Company Number: SE-ABBVIE-14K-150-1228256-00

PATIENT
  Sex: Female

DRUGS (3)
  1. ERGENYL [Suspect]
     Indication: EPILEPSY
     Route: 048
  2. METFORMIN HYDROCHLORIDE [Concomitant]
     Indication: PRODUCT USED FOR UNKNOWN INDICATION
  3. ANTIHYPERTENSIVES [Concomitant]
     Indication: PRODUCT USED FOR UNKNOWN INDICATION

REACTIONS (3)
  - Incorrect drug administration duration [Unknown]
  - Convulsion [Recovering/Resolving]
  - Drug level increased [Recovering/Resolving]
